FAERS Safety Report 10939866 (Version 2)
Quarter: 2015Q2

REPORT INFORMATION
  Report Type: Spontaneous
  Country: US (occurrence: US)
  Receive Date: 20150322
  Receipt Date: 20150526
  Transmission Date: 20150821
  Serious: No
  Sender: FDA-Public Use
  Company Number: US-JNJFOC-20140710780

PATIENT
  Sex: Male

DRUGS (1)
  1. RISPERDAL [Suspect]
     Active Substance: RISPERIDONE
     Indication: ATTENTION DEFICIT/HYPERACTIVITY DISORDER
     Route: 048
     Dates: start: 201002, end: 201106

REACTIONS (5)
  - Emotional distress [Unknown]
  - Product use issue [Unknown]
  - Gynaecomastia [Unknown]
  - Weight increased [Unknown]
  - Chest pain [Unknown]
